FAERS Safety Report 5768097-4 (Version None)
Quarter: 2008Q2

REPORT INFORMATION
  Report Type: 
  Country: None (occurrence: None)
  Receive Date: 20080612
  Receipt Date: 20080605
  Transmission Date: 20081010
  Serious: Yes (Other)
  Sender: FDA-Public Use
  Company Number: AU-AVENTIS-200813484GDDC

PATIENT
  Age: 58 Year
  Sex: Male

DRUGS (3)
  1. ARAVA [Suspect]
     Indication: RHEUMATOID ARTHRITIS
     Route: 048
     Dates: start: 20061126
  2. PREDNISONE TAB [Concomitant]
     Dosage: DOSE: UNK
  3. CORTISONE [Concomitant]
     Dosage: DOSE: UNK
     Route: 051

REACTIONS (2)
  - JOINT SWELLING [None]
  - SPINAL LAMINECTOMY [None]
